FAERS Safety Report 9260212 (Version 2)
Quarter: 2013Q2

REPORT INFORMATION
  Report Type: Spontaneous
  Country: US (occurrence: US)
  Receive Date: 20130429
  Receipt Date: 20130603
  Transmission Date: 20140414
  Serious: No
  Sender: FDA-Public Use
  Company Number: US-PFIZER INC-2013132829

PATIENT
  Age: 68 Year
  Sex: Female
  Weight: 90.7 kg

DRUGS (6)
  1. CELEBREX [Suspect]
     Indication: ARTHRITIS
     Dosage: 200MG DAILY
     Dates: end: 201303
  2. CALAN SR [Suspect]
     Indication: HYPERTENSION
     Dosage: 240MG DAILY
     Dates: end: 201303
  3. METFORMIN [Concomitant]
     Indication: DIABETES MELLITUS
     Dosage: UNK, 1X/DAY
  4. BENAZEPRIL [Concomitant]
     Indication: HYPERTENSION
     Dosage: UNK, 1X/DAY
  5. SIMVASTATIN [Concomitant]
     Indication: BLOOD CHOLESTEROL ABNORMAL
     Dosage: UNK, 1X/DAY
  6. ACETYLSALICYLIC ACID [Concomitant]
     Dosage: UNK

REACTIONS (1)
  - Pain [Not Recovered/Not Resolved]
